FAERS Safety Report 9089282 (Version 1)
Quarter: 2013Q1

REPORT INFORMATION
  Report Type: Spontaneous
  Country: FR (occurrence: FR)
  Receive Date: 20130131
  Receipt Date: 20130131
  Transmission Date: 20140127
  Serious: Yes (Hospitalization, Other)
  Sender: FDA-Public Use
  Company Number: FR-PFIZER INC-2013029189

PATIENT
  Age: 72 Year
  Sex: Male

DRUGS (4)
  1. FLUOROURACILE PFIZER [Suspect]
     Indication: RECTAL ADENOCARCINOMA
     Dosage: 4320 MG X 1 ACCORDING TO THE CYCLE
     Route: 042
     Dates: start: 20121127, end: 20121128
  2. OXALIPLATIN [Concomitant]
     Indication: RECTAL ADENOCARCINOMA
     Dosage: UNK
     Dates: start: 20121126
  3. IRINOTECAN [Concomitant]
     Indication: RECTAL ADENOCARCINOMA
     Dosage: UNK
     Dates: start: 20121126
  4. CRESTOR [Concomitant]

REACTIONS (1)
  - Prinzmetal angina [Recovered/Resolved]
